FAERS Safety Report 9691643 (Version 1)
Quarter: 2013Q4

REPORT INFORMATION
  Report Type: Spontaneous
  Country: US (occurrence: US)
  Receive Date: 20131115
  Receipt Date: 20131115
  Transmission Date: 20140711
  Serious: No
  Sender: FDA-Public Use
  Company Number: US-PFIZER INC-2013326293

PATIENT
  Age: 37 Year
  Sex: Female
  Weight: 113.38 kg

DRUGS (3)
  1. GABAPENTIN [Suspect]
     Indication: NERVOUS SYSTEM DISORDER
     Dosage: 100 MG, UNK
  2. NEURONTIN [Suspect]
     Indication: NERVOUS SYSTEM DISORDER
     Dosage: UNK
     Dates: start: 2011
  3. GABAPENTIN [Suspect]
     Indication: NERVOUS SYSTEM DISORDER
     Dosage: 200 MG, 3X/DAY
     Dates: start: 201311

REACTIONS (2)
  - Feeling abnormal [Unknown]
  - Drug ineffective [Unknown]
